FAERS Safety Report 13470191 (Version 1)
Quarter: 2017Q2

REPORT INFORMATION
  Report Type: Spontaneous
  Country: US (occurrence: US)
  Receive Date: 20170421
  Receipt Date: 20170421
  Transmission Date: 20170830
  Serious: No
  Sender: FDA-Public Use
  Company Number: None

PATIENT
  Sex: Female

DRUGS (1)
  1. COSENTYX [Suspect]
     Active Substance: SECUKINUMAB
     Indication: RHEUMATOID ARTHRITIS
     Route: 058
     Dates: start: 20170222, end: 20170329

REACTIONS (4)
  - Arthralgia [None]
  - Diarrhoea [None]
  - Abdominal pain upper [None]
  - Fatigue [None]
